FAERS Safety Report 7717361-8 (Version None)
Quarter: 2011Q3

REPORT INFORMATION
  Report Type: 
  Country: None (occurrence: None)
  Receive Date: 20110830
  Receipt Date: 20110824
  Transmission Date: 20111222
  Serious: Yes (Hospitalization, Other)
  Sender: FDA-Public Use
  Company Number: JP-BAYER-2011-051181

PATIENT
  Age: 85 Year
  Sex: Female
  Weight: 60 kg

DRUGS (1)
  1. NEXAVAR [Suspect]
     Indication: HEPATIC NEOPLASM MALIGNANT
     Dosage: 400 MG, BID
     Route: 048
     Dates: start: 20110530, end: 20110611

REACTIONS (4)
  - COMA HEPATIC [None]
  - DEPRESSED LEVEL OF CONSCIOUSNESS [None]
  - CEREBRAL ISCHAEMIA [None]
  - HYPERAMMONAEMIA [None]
